FAERS Safety Report 6879881-8 (Version None)
Quarter: 2010Q3

REPORT INFORMATION
  Report Type: 
  Country: None (occurrence: None)
  Receive Date: 20100727
  Receipt Date: 20100407
  Transmission Date: 20110219
  Serious: No
  Sender: FDA-Public Use
  Company Number: US-ABBOTT-10P-163-0637011-00

PATIENT
  Sex: Female

DRUGS (9)
  1. LEVOTHYROXINE [Suspect]
     Indication: THYROIDECTOMY
     Route: 048
     Dates: start: 20090801
  2. PACERONE [Suspect]
     Indication: HEART RATE IRREGULAR
     Route: 048
     Dates: start: 20090101, end: 20100101
  3. AMIODARONE HCL [Suspect]
     Indication: HEART RATE IRREGULAR
     Route: 048
     Dates: start: 20100101
  4. CALCITRIOL [Concomitant]
     Indication: PRODUCT USED FOR UNKNOWN INDICATION
  5. CALCIUM [Concomitant]
     Indication: PRODUCT USED FOR UNKNOWN INDICATION
  6. LOVASTATIN [Concomitant]
     Indication: PRODUCT USED FOR UNKNOWN INDICATION
  7. TENORMIN [Concomitant]
     Indication: PRODUCT USED FOR UNKNOWN INDICATION
  8. SPIRONOLACTONE [Concomitant]
     Indication: PRODUCT USED FOR UNKNOWN INDICATION
  9. COUMADIN [Concomitant]
     Indication: PRODUCT USED FOR UNKNOWN INDICATION

REACTIONS (1)
  - ALOPECIA [None]
